FAERS Safety Report 22295570 (Version 1)
Quarter: 2023Q2

REPORT INFORMATION
  Report Type: Spontaneous
  Country: US (occurrence: None)
  Receive Date: 20230506
  Receipt Date: 20230506
  Transmission Date: 20230721
  Serious: Yes (unspecified)
  Sender: FDA-Public Use
  Company Number: None

PATIENT
  Age: 38 Year
  Sex: Female

DRUGS (1)
  1. OFLOXACIN OPHTHALMIC [Suspect]
     Active Substance: OFLOXACIN
     Indication: Conjunctivitis
     Dosage: OTHER QUANTITY : 1 DROP(S);?FREQUENCY : EVERY 6 HOURS;?
     Route: 047
     Dates: start: 20230218, end: 20230220

REACTIONS (1)
  - Urticaria [None]

NARRATIVE: CASE EVENT DATE: 20230220
